FAERS Safety Report 10479953 (Version 1)
Quarter: 2014Q3

REPORT INFORMATION
  Report Type: Spontaneous
  Country: JP (occurrence: JP)
  Receive Date: 20140929
  Receipt Date: 20140929
  Transmission Date: 20150326
  Serious: Yes (Hospitalization)
  Sender: FDA-Public Use
  Company Number: JP-ROCHE-1466414

PATIENT
  Age: 64 Year
  Sex: Male

DRUGS (11)
  1. VINCRISTINE [Concomitant]
     Active Substance: VINCRISTINE
  2. RITUXIMAB [Suspect]
     Active Substance: RITUXIMAB
     Indication: HODGKIN^S DISEASE
     Route: 065
     Dates: start: 201301
  3. CYTARABINE. [Concomitant]
     Active Substance: CYTARABINE
     Route: 065
     Dates: start: 201301
  4. ETOPOSIDE. [Suspect]
     Active Substance: ETOPOSIDE
     Indication: HODGKIN^S DISEASE
     Route: 065
     Dates: start: 201301
  5. PROCARBAZINE [Concomitant]
     Active Substance: PROCARBAZINE
  6. DOXORUBICIN [Concomitant]
     Active Substance: DOXORUBICIN
  7. CYCLOPHOSPHAMIDE. [Concomitant]
     Active Substance: CYCLOPHOSPHAMIDE
  8. PREDNISONE. [Concomitant]
     Active Substance: PREDNISONE
  9. METHYLPREDNISOLONE [Concomitant]
     Active Substance: METHYLPREDNISOLONE
     Route: 065
     Dates: start: 201301
  10. BLEOMYCIN [Concomitant]
     Active Substance: BLEOMYCIN SULFATE
     Route: 065
  11. CISPLATIN. [Concomitant]
     Active Substance: CISPLATIN
     Route: 065
     Dates: start: 201301

REACTIONS (2)
  - Oesophagitis [Recovering/Resolving]
  - Interstitial lung disease [Recovering/Resolving]
